FAERS Safety Report 10982236 (Version 1)
Quarter: 2015Q2

REPORT INFORMATION
  Report Type: Spontaneous
  Country: None (occurrence: None)
  Receive Date: 20150401
  Receipt Date: 20150401
  Transmission Date: 20150821
  Serious: Yes (Hospitalization)
  Sender: FDA-Public Use
  Company Number: None

PATIENT
  Age: 71 Year
  Sex: Female
  Weight: 74 kg

DRUGS (1)
  1. MIRVASO [Suspect]
     Active Substance: BRIMONIDINE TARTRATE
     Indication: ROSACEA
     Dosage: APPLY SPARINGLY
     Route: 061
     Dates: start: 20150302, end: 20150315

REACTIONS (5)
  - Swelling face [None]
  - Cellulitis [None]
  - Erythema [None]
  - Eating disorder [None]
  - Facial pain [None]

NARRATIVE: CASE EVENT DATE: 20150316
